FAERS Safety Report 7535382-5 (Version None)
Quarter: 2011Q2

REPORT INFORMATION
  Report Type: 
  Country: None (occurrence: None)
  Receive Date: 20110609
  Receipt Date: 20080520
  Transmission Date: 20111010
  Serious: Yes (Hospitalization, Other)
  Sender: FDA-Public Use
  Company Number: PHHY2008BR01522

PATIENT
  Age: 74 Year
  Sex: Male

DRUGS (6)
  1. DIOVAN [Suspect]
     Dosage: UNK, QD
     Route: 048
     Dates: start: 20050701, end: 20060501
  2. SIMVASTATIN [Concomitant]
     Indication: CARDIAC DISORDER
     Dosage: 10 MG, QD
     Route: 048
  3. ANCORON [Concomitant]
     Indication: CARDIAC DISORDER
     Dosage: 1/2 TAB TWICE DAILY
     Route: 048
  4. ASPIRIN [Concomitant]
     Dosage: 100 MG, BID
     Dates: start: 20060501
  5. MONOCORDIL [Concomitant]
     Indication: CARDIAC DISORDER
     Dosage: 20 MG, BID
     Route: 048
  6. VITAMIN B-12 [Concomitant]
     Dosage: UNK, QD

REACTIONS (6)
  - ARTERIAL OCCLUSIVE DISEASE [None]
  - BLOOD CHOLESTEROL INCREASED [None]
  - SCIATIC NERVE INJURY [None]
  - GAIT DISTURBANCE [None]
  - PAIN IN EXTREMITY [None]
  - CHEST PAIN [None]
